FAERS Safety Report 24215938 (Version 1)
Quarter: 2024Q3

REPORT INFORMATION
  Report Type: Spontaneous
  Country: US (occurrence: None)
  Receive Date: 20240816
  Receipt Date: 20240816
  Transmission Date: 20241017
  Serious: No
  Sender: OREXO
  Company Number: US-Orexo US, Inc.-ORE202402-000009

PATIENT
  Sex: Female

DRUGS (1)
  1. ZUBSOLV [Suspect]
     Active Substance: BUPRENORPHINE HYDROCHLORIDE\NALOXONE HYDROCHLORIDE
     Indication: Drug dependence
     Dosage: BY MOUTH DAILY

REACTIONS (4)
  - Hot flush [Unknown]
  - Head discomfort [Unknown]
  - Feeling abnormal [Unknown]
  - Blood pressure increased [Unknown]
